FAERS Safety Report 6620785-3 (Version None)
Quarter: 2010Q1

REPORT INFORMATION
  Report Type: 
  Country: None (occurrence: None)
  Receive Date: 20100309
  Receipt Date: 20100225
  Transmission Date: 20100710
  Serious: Yes (Hospitalization)
  Sender: FDA-Public Use
  Company Number: JP-PFIZER INC-2010021952

PATIENT
  Age: 72 Year
  Sex: Female

DRUGS (5)
  1. SEIBULE [Suspect]
     Indication: DIABETES MELLITUS
     Dosage: UNK
     Route: 048
     Dates: start: 20090602, end: 20091209
  2. STARSIS [Suspect]
     Dosage: UNK
     Route: 048
  3. AMLODIPINE [Concomitant]
     Dosage: UNK
     Route: 048
     Dates: start: 20080312
  4. OLMESARTAN MEDOXOMIL [Concomitant]
     Dosage: UNK
     Route: 048
     Dates: start: 20080312
  5. ASPIRIN [Concomitant]
     Dosage: UNK
     Route: 048
     Dates: start: 20080312

REACTIONS (1)
  - ILEUS [None]
